FAERS Safety Report 16357513 (Version 5)
Quarter: 2020Q2

REPORT INFORMATION
  Report Type: Report from Study
  Country: None (occurrence: FR)
  Receive Date: 20190527
  Receipt Date: 20200625
  Transmission Date: 20200713
  Serious: Yes (Disabling, Other)
  Sender: FDA-Public Use
  Company Number: FR-ABBVIE-19S-056-2798365-00

PATIENT
  Age: 76 Year
  Sex: Male

DRUGS (10)
  1. MODOPAR 125 LP [Concomitant]
     Indication: PRODUCT USED FOR UNKNOWN INDICATION
     Dosage: 1 TABLET IN THE EVENING
     Route: 048
  2. VITAMIN B12 [Concomitant]
     Active Substance: CYANOCOBALAMIN
     Indication: PRODUCT USED FOR UNKNOWN INDICATION
     Dosage: 1 VIAL
     Route: 030
  3. PAROXETIN 20 [Concomitant]
     Indication: PRODUCT USED FOR UNKNOWN INDICATION
     Dosage: 1 TABLET IN THE MORNING
     Route: 048
  4. DUODOPA [Suspect]
     Active Substance: CARBIDOPA\LEVODOPA
     Indication: PARKINSON^S DISEASE
     Dosage: MD : 7 ML ED : 3 ML  FLOW RATE DURING THE DAY: 2.5 ML/H FROM 07:00 AM TO 09:00 PM
     Route: 050
     Dates: start: 20171120, end: 201907
  5. DUODOPA [Suspect]
     Active Substance: CARBIDOPA\LEVODOPA
     Dosage: CONTIUNOUS FLOW RATE INCREASE
     Route: 050
     Dates: start: 201907
  6. GUTRON [Concomitant]
     Active Substance: MIDODRINE
     Indication: PRODUCT USED FOR UNKNOWN INDICATION
     Dosage: 1 TABLET IN THE MORNING AND 1 TABLET AT MIDDAY
  7. SPECIAFOLDINE [Concomitant]
     Active Substance: FOLIC ACID
     Indication: PRODUCT USED FOR UNKNOWN INDICATION
     Dosage: ONLY THE FIRST WEEK OF EVERY MONTH
  8. DUODOPA [Suspect]
     Active Substance: CARBIDOPA\LEVODOPA
     Dosage: MD: 6ML , CONTINOUS FLOW RATE: 2.5ML/H , ED: 2ML
     Route: 050
  9. DUODOPA [Suspect]
     Active Substance: CARBIDOPA\LEVODOPA
     Dosage: MD: 6ML , CONTINOUS FLOW RATE: 2.7ML/H , ED: 2ML FROM 7AM TO 7PM
     Route: 050
  10. CLOZAPINE 25 [Concomitant]
     Indication: PRODUCT USED FOR UNKNOWN INDICATION
     Dosage: HALF TABLET IN THE EVENING
     Route: 048

REACTIONS (9)
  - Dyskinesia [Not Recovered/Not Resolved]
  - Balance disorder [Unknown]
  - Age-related macular degeneration [Unknown]
  - Fall [Unknown]
  - Dysstasia [Unknown]
  - Gait disturbance [Unknown]
  - Mobility decreased [Unknown]
  - Cataract [Unknown]
  - Glaucoma [Unknown]

NARRATIVE: CASE EVENT DATE: 2019
